FAERS Safety Report 10681605 (Version 1)
Quarter: 2014Q4

REPORT INFORMATION
  Report Type: Spontaneous
  Country: CN (occurrence: None)
  Receive Date: 20141224
  Receipt Date: 20141224
  Transmission Date: 20150529
  Serious: Yes (Other)
  Sender: FDA-Public Use
  Company Number: COR_00202_2014

PATIENT

DRUGS (2)
  1. CARBOPLATIN. [Suspect]
     Active Substance: CARBOPLATIN
     Indication: NON-SMALL CELL LUNG CANCER
     Dosage: AUC = 5, OVER 1 HOUR, EVERY 3 WEEKS, UP TO 4 TO 6 CYCLES, NOT OTHERWISE SPECIFIED
     Route: 042
  2. PACLITAXEL. [Suspect]
     Active Substance: PACLITAXEL
     Indication: NON-SMALL CELL LUNG CANCER
     Dosage: OVER 3 HOURS, UP TO 4 TO 6 CYCLES, NOT OTHERWISE SPECIFIED
     Route: 042

REACTIONS (1)
  - Respiratory tract infection [None]
